FAERS Safety Report 9412249 (Version 1)
Quarter: 2013Q3

REPORT INFORMATION
  Report Type: Spontaneous
  Country: US (occurrence: US)
  Receive Date: 20130722
  Receipt Date: 20130722
  Transmission Date: 20140515
  Serious: No
  Sender: FDA-Public Use
  Company Number: US-UPSHER-SMITH LABORATORIES, INC.-13002443

PATIENT
  Age: 49 Year
  Sex: Female

DRUGS (2)
  1. DIVIGEL [Suspect]
     Indication: HOT FLUSH
     Dosage: 0.5 MG, QD
     Route: 061
     Dates: start: 20130620, end: 20130709
  2. ZYRTEC                             /00884302/ [Concomitant]
     Dosage: UNK

REACTIONS (1)
  - Insomnia [Not Recovered/Not Resolved]
